FAERS Safety Report 16454336 (Version 1)
Quarter: 2019Q2

REPORT INFORMATION
  Report Type: Spontaneous
  Country: US (occurrence: US)
  Receive Date: 20190619
  Receipt Date: 20190619
  Transmission Date: 20190711
  Serious: Yes (Other)
  Sender: FDA-Public Use
  Company Number: PHEH2019US025393

PATIENT

DRUGS (2)
  1. PROPARACAINE HCL [Suspect]
     Active Substance: PROPARACAINE HYDROCHLORIDE
     Indication: OPHTHALMOLOGICAL EXAMINATION
     Dosage: UNK
     Route: 047
     Dates: start: 20160920
  2. PROPARACAINE HCL [Suspect]
     Active Substance: PROPARACAINE HYDROCHLORIDE
     Indication: EYE PAIN

REACTIONS (4)
  - Product label issue [Unknown]
  - Product prescribing error [Unknown]
  - Blindness unilateral [Unknown]
  - Product use in unapproved indication [Unknown]
